FAERS Safety Report 9312235 (Version 1)
Quarter: 2013Q2

REPORT INFORMATION
  Report Type: Spontaneous
  Country: US (occurrence: US)
  Receive Date: 20130528
  Receipt Date: 20130528
  Transmission Date: 20140414
  Serious: No
  Sender: FDA-Public Use
  Company Number: US-MYLANLABS-2013S1009070

PATIENT
  Age: 50 Year
  Sex: Female

DRUGS (3)
  1. MONTELUKAST SODIUM [Suspect]
     Indication: HYPERSENSITIVITY
     Route: 048
     Dates: start: 201304
  2. ZYRTEC [Concomitant]
     Indication: MULTIPLE ALLERGIES
  3. CLARITIN /00917501/ [Concomitant]
     Indication: MULTIPLE ALLERGIES

REACTIONS (2)
  - Drug ineffective [Not Recovered/Not Resolved]
  - Multiple allergies [Not Recovered/Not Resolved]
